FAERS Safety Report 19594183 (Version 1)
Quarter: 2021Q3

REPORT INFORMATION
  Report Type: Spontaneous
  Country: SE (occurrence: SE)
  Receive Date: 20210722
  Receipt Date: 20210722
  Transmission Date: 20211014
  Serious: Yes (Other)
  Sender: FDA-Public Use
  Company Number: SE-MYLANLABS-2021M1043472

PATIENT
  Sex: Male

DRUGS (1)
  1. OMEPRAZOLE MYLAN [Suspect]
     Active Substance: OMEPRAZOLE
     Indication: HIATUS HERNIA
     Dosage: 20 MG 1X1
     Route: 048
     Dates: start: 201804, end: 202001

REACTIONS (2)
  - Premature ejaculation [Recovered/Resolved]
  - Erectile dysfunction [Recovered/Resolved]
